FAERS Safety Report 14117831 (Version 1)
Quarter: 2017Q4

REPORT INFORMATION
  Report Type: Spontaneous
  Country: CH (occurrence: CH)
  Receive Date: 20171023
  Receipt Date: 20171023
  Transmission Date: 20180321
  Serious: Yes (Other)
  Sender: FDA-Public Use
  Company Number: PHHY2017CH155548

PATIENT
  Age: 4 Year
  Sex: Female

DRUGS (2)
  1. ACZ885 [Suspect]
     Active Substance: CANAKINUMAB
     Indication: TUMOUR NECROSIS FACTOR RECEPTOR-ASSOCIATED PERIODIC SYNDROME
     Dosage: UNK
     Route: 065
  2. ACZ885 [Suspect]
     Active Substance: CANAKINUMAB
     Dosage: 6 MG/KG, UNK
     Route: 065

REACTIONS (9)
  - Intracranial pressure increased [Unknown]
  - Arthralgia [Unknown]
  - Headache [Recovered/Resolved]
  - Vomiting [Unknown]
  - Pyrexia [Unknown]
  - Therapeutic response decreased [Unknown]
  - Pleocytosis [Unknown]
  - Consciousness fluctuating [Unknown]
  - Meningitis aseptic [Unknown]
